FAERS Safety Report 20053159 (Version 1)
Quarter: 2021Q4

REPORT INFORMATION
  Report Type: Report from Study
  Country: FR (occurrence: FR)
  Receive Date: 20211110
  Receipt Date: 20211110
  Transmission Date: 20220303
  Serious: Yes (Death)
  Sender: FDA-Public Use
  Company Number: FR-MYLANLABS-2021M1082145

PATIENT
  Sex: Male

DRUGS (5)
  1. DEXAMETHASONE [Suspect]
     Active Substance: DEXAMETHASONE
     Indication: Mantle cell lymphoma
     Dosage: ON DAYS 1-4; RECEIVED IN CYCLES OF 35 DAYS AS PART OF THE RIPAD+C REGIMEN
     Route: 065
  2. RITUXIMAB [Suspect]
     Active Substance: RITUXIMAB
     Indication: Mantle cell lymphoma
     Dosage: ON DAY 1 (AND DAY 8 OF CYCLE 1); RECEIVED IN CYCLES OF 35 DAYS AS PART OF THE...
     Route: 065
  3. VELCADE [Suspect]
     Active Substance: BORTEZOMIB
     Indication: Mantle cell lymphoma
     Dosage: ON DAYS 1, 4, 8 AND 11; RECEIVED IN CYCLES OF 35 DAYS AS PART OF THE...
     Route: 065
  4. DOXORUBICIN [Suspect]
     Active Substance: DOXORUBICIN
     Indication: Mantle cell lymphoma
     Dosage: AS A CONTINUOUS INFUSION ON DAYS 1-4; RECEIVED IN CYCLES OF 35 DAYS AS PART OF THE...
  5. CHLORAMBUCIL [Suspect]
     Active Substance: CHLORAMBUCIL
     Indication: Mantle cell lymphoma
     Dosage: ON DAYS 20-29; RECEIVED IN CYCLES OF 35 DAYS AS PART OF THE RIPAD+C REGIMEN
     Route: 065

REACTIONS (2)
  - Sepsis [Fatal]
  - Fungal infection [Fatal]
